FAERS Safety Report 12221574 (Version 1)
Quarter: 2016Q1

REPORT INFORMATION
  Report Type: Spontaneous
  Country: GB (occurrence: GB)
  Receive Date: 20160330
  Receipt Date: 20160330
  Transmission Date: 20160526
  Serious: Yes (Disabling)
  Sender: FDA-Public Use
  Company Number: GB-PFIZER INC-2016176660

PATIENT
  Age: 82 Year
  Sex: Female
  Weight: 71 kg

DRUGS (22)
  1. PARACETAMOL [Concomitant]
     Active Substance: ACETAMINOPHEN
     Dosage: TAKE 1 OR 2, 4 TIMES A DAY.
     Dates: start: 20160209, end: 20160219
  2. WARFARIN SODIUM. [Concomitant]
     Active Substance: WARFARIN SODIUM
     Indication: ANTICOAGULANT THERAPY
     Dosage: 1 DF, UNK AS DIRECTED BY ANTICOAGULANT CLINIC
     Dates: start: 20160122
  3. ASPIRIN /00002701/ [Concomitant]
     Active Substance: ASPIRIN
     Dosage: 1 DF, 1X/DAY
     Dates: start: 20100824, end: 20160126
  4. CALCICHEW D3 [Concomitant]
     Active Substance: CALCIUM\CHOLECALCIFEROL
     Dosage: 1 DF, 2X/DAY EXCEPT ON DAY OF ALENDRONATE.
     Dates: start: 20151030
  5. TILDIEM [Concomitant]
     Active Substance: DILTIAZEM HYDROCHLORIDE
     Dosage: 1 DF, 1X/DAY
     Dates: start: 20140827
  6. ALENDRONIC ACID [Concomitant]
     Active Substance: ALENDRONIC ACID
     Dosage: 1 DF, WEEKLY
     Dates: start: 20110831, end: 20160303
  7. DALTEPARIN [Concomitant]
     Active Substance: DALTEPARIN
     Dosage: USE AS DIRECTED.
     Dates: start: 20151224, end: 20151229
  8. LISINOPRIL. [Concomitant]
     Active Substance: LISINOPRIL
     Dosage: 1 DF, 1X/DAY
     Dates: start: 20080819
  9. SIMVASTATIN. [Concomitant]
     Active Substance: SIMVASTATIN
     Dosage: 1 DF, 1X/DAY AT NIGHT.
     Dates: start: 20030826
  10. FLUCLOXACILLIN [Concomitant]
     Active Substance: FLUCLOXACILLIN
     Dosage: 1 DF, 4X/DAY
     Dates: start: 20160209, end: 20160216
  11. FUROSEMIDE. [Concomitant]
     Active Substance: FUROSEMIDE
     Dosage: 2 DF, 1X/DAY EACH MORNING.
     Dates: start: 20160112, end: 20160209
  12. GLICLAZIDE [Concomitant]
     Active Substance: GLICLAZIDE
     Dosage: 2 DF, 2X/DAY
     Dates: start: 20040401
  13. BUMETANIDE. [Concomitant]
     Active Substance: BUMETANIDE
     Dosage: 3 DF, DAILY TWO EACH MORNING AND ONE AT LUNCHTIME
     Dates: start: 20160122
  14. CIPROFLOXACIN. [Concomitant]
     Active Substance: CIPROFLOXACIN
     Dosage: 1 DF, 2X/DAY
     Dates: start: 20151222, end: 20151229
  15. PIOGLITAZONE. [Concomitant]
     Active Substance: PIOGLITAZONE
     Dosage: 1 DF, 1X/DAY
     Dates: start: 20130117, end: 20160104
  16. IBUPROFEN. [Suspect]
     Active Substance: IBUPROFEN
     Dosage: UNK
     Dates: start: 20160316
  17. DILTIAZEM [Concomitant]
     Active Substance: DILTIAZEM
     Dosage: 1 DF, 1X/DAY
     Dates: start: 20160122, end: 20160122
  18. SALBUTAMOL [Concomitant]
     Active Substance: ALBUTEROL
     Dosage: 2 DF, UNK
     Route: 055
     Dates: start: 20160112
  19. AMITRIPTYLINE HYDROCHLORIDE. [Concomitant]
     Active Substance: AMITRIPTYLINE HYDROCHLORIDE
     Dosage: 1 DF, 1X/DAY EACH NIGHT.
     Dates: start: 20160128
  20. CODEINE PHOSPHATE [Concomitant]
     Active Substance: CODEINE PHOSPHATE
     Dosage: TAKE ONE OR TWO 4 TIMES A DAY.
     Dates: start: 20160314
  21. DIPROBASE /01132701/ [Concomitant]
     Dosage: UNK
     Dates: start: 20160222
  22. SENNA /00142201/ [Concomitant]
     Active Substance: SENNA LEAF
     Dosage: 2 DF, 1X/DAY AT NIGHT.
     Dates: start: 20130423

REACTIONS (1)
  - Vomiting [Recovered/Resolved]

NARRATIVE: CASE EVENT DATE: 20160316
